FAERS Safety Report 22089620 (Version 2)
Quarter: 2023Q1

REPORT INFORMATION
  Report Type: Report from Study
  Country: GR (occurrence: GR)
  Receive Date: 20230313
  Receipt Date: 20230328
  Transmission Date: 20230417
  Serious: Yes (Life-Threatening, Hospitalization)
  Sender: FDA-Public Use
  Company Number: GR-ABBVIE-4319457

PATIENT
  Age: 83 Year
  Sex: Male
  Weight: 80 kg

DRUGS (4)
  1. AZACITIDINE [Suspect]
     Active Substance: AZACITIDINE
     Indication: Acute myeloid leukaemia
     Dosage: 150 MG, QD (TWO CYCLES LAST ADMIN DATE-2023)
     Route: 058
     Dates: start: 20230123
  2. AZACITIDINE [Suspect]
     Active Substance: AZACITIDINE
     Dosage: UNK
     Route: 058
     Dates: start: 20230306, end: 20230312
  3. VENETOCLAX [Suspect]
     Active Substance: VENETOCLAX
     Indication: Acute myeloid leukaemia
     Dosage: 400 MILLIGRAM, QD (LAST ADMIN DATE- 2023)
     Route: 048
     Dates: start: 20230123
  4. VENETOCLAX [Suspect]
     Active Substance: VENETOCLAX
     Dosage: 400 MILLIGRAM, QD
     Route: 048
     Dates: start: 20230306, end: 20230312

REACTIONS (3)
  - Haemodynamic instability [Recovered/Resolved]
  - Febrile neutropenia [Recovered/Resolved]
  - Neutrophil count abnormal [Recovered/Resolved]

NARRATIVE: CASE EVENT DATE: 20230223
